FAERS Safety Report 5802477-3 (Version None)
Quarter: 2008Q3

REPORT INFORMATION
  Report Type: 
  Country: None (occurrence: None)
  Receive Date: 20080708
  Receipt Date: 20080704
  Transmission Date: 20090109
  Serious: Yes (Death)
  Sender: FDA-Public Use
  Company Number: GB-RANBAXY-2007RR-08156

PATIENT

DRUGS (1)
  1. FLUOXETINE [Suspect]
     Route: 064

REACTIONS (1)
  - INTRA-UTERINE DEATH [None]
